FAERS Safety Report 4393668-X (Version None)
Quarter: 2004Q3

REPORT INFORMATION
  Report Type: 
  Country: None (occurrence: None)
  Receive Date: 20040709
  Receipt Date: 20030407
  Transmission Date: 20050211
  Serious: Yes (Disabling, Other)
  Sender: FDA-Public Use
  Company Number: US-MERCK-0304USA00816

PATIENT
  Age: 53 Year
  Sex: Female
  Weight: 82 kg

DRUGS (12)
  1. [THERAPY UNSPECIFIED] [Concomitant]
     Indication: PAIN
     Route: 065
     Dates: start: 19931001, end: 20031001
  2. ENDOCET [Concomitant]
     Route: 065
  3. ELAVIL [Concomitant]
     Route: 065
  4. TENORMIN [Concomitant]
     Indication: HYPERTENSION
     Route: 065
     Dates: end: 19991004
  5. VANCENASE [Concomitant]
     Route: 065
  6. PREMARIN [Concomitant]
     Indication: HORMONE REPLACEMENT THERAPY
     Route: 065
     Dates: start: 19761001, end: 20031011
  7. PREVACID [Concomitant]
     Route: 065
  8. SYNTHROID [Concomitant]
     Route: 065
  9. PRINIVIL [Concomitant]
     Indication: BLOOD PRESSURE
     Route: 048
     Dates: start: 19991004, end: 20031112
  10. METHOCARBAMOL [Concomitant]
     Route: 065
  11. PRILOSEC [Concomitant]
     Route: 065
  12. VIOXX [Suspect]
     Indication: OSTEOARTHRITIS
     Route: 048
     Dates: end: 20020724

REACTIONS (24)
  - ABDOMINAL PAIN UPPER [None]
  - AORTIC ATHEROSCLEROSIS [None]
  - ARTHRALGIA [None]
  - BACK PAIN [None]
  - CARDIOMEGALY [None]
  - CHROMATURIA [None]
  - DRY MOUTH [None]
  - FATIGUE [None]
  - FLUID RETENTION [None]
  - GASTROOESOPHAGEAL REFLUX DISEASE [None]
  - HAEMATOMA [None]
  - HAEMORRHOIDAL HAEMORRHAGE [None]
  - HYPERSENSITIVITY [None]
  - HYPERTENSION [None]
  - HYPOAESTHESIA [None]
  - JOINT EFFUSION [None]
  - LUNG DISORDER [None]
  - MIGRAINE [None]
  - MYALGIA [None]
  - NAUSEA [None]
  - OEDEMA PERIPHERAL [None]
  - PAIN IN EXTREMITY [None]
  - ROAD TRAFFIC ACCIDENT [None]
  - URINE ODOUR ABNORMAL [None]
